FAERS Safety Report 25626414 (Version 1)
Quarter: 2025Q3

REPORT INFORMATION
  Report Type: Spontaneous
  Country: EU (occurrence: EU)
  Receive Date: 20250731
  Receipt Date: 20250731
  Transmission Date: 20251021
  Serious: Yes (Life-Threatening)
  Sender: RANBAXY
  Company Number: EU-AFSSAPS-PC2025000328

PATIENT
  Age: 69 Year
  Sex: Male
  Weight: 94 kg

DRUGS (5)
  1. AMLODIPINE [Suspect]
     Active Substance: AMLODIPINE BESYLATE
     Indication: Product used for unknown indication
     Dosage: 10 MG/J
     Route: 048
     Dates: start: 20250228, end: 20250316
  2. MEROPENEM [Suspect]
     Active Substance: MEROPENEM
     Indication: Arthritis bacterial
     Dosage: 1500 MG/J
     Route: 040
     Dates: start: 20250228, end: 20250306
  3. TYGACIL [Suspect]
     Active Substance: TIGECYCLINE
     Indication: Arthritis bacterial
     Dosage: 200 MG/J
     Route: 040
     Dates: start: 20250228, end: 20250316
  4. CALCIPARINE [Suspect]
     Active Substance: HEPARIN CALCIUM
     Indication: Anticoagulant therapy
     Dosage: 10000 UI/J
     Route: 058
     Dates: start: 20250228, end: 20250316
  5. FIDAXOMICIN [Suspect]
     Active Substance: FIDAXOMICIN
     Indication: Product used for unknown indication
     Dosage: 200 MG/J
     Route: 048
     Dates: start: 20250303, end: 20250315

REACTIONS (1)
  - Gastrointestinal haemorrhage [Recovered/Resolved]

NARRATIVE: CASE EVENT DATE: 20250316
